FAERS Safety Report 24262063 (Version 2)
Quarter: 2025Q1

REPORT INFORMATION
  Report Type: Spontaneous
  Country: US (occurrence: US)
  Receive Date: 20240829
  Receipt Date: 20250205
  Transmission Date: 20250409
  Serious: No
  Sender: SANOFI AVENTIS
  Company Number: US-SA-SAC20240822000699

PATIENT
  Age: 27 Year
  Sex: Female

DRUGS (1)
  1. DUPIXENT [Suspect]
     Active Substance: DUPILUMAB
     Indication: Eosinophilic oesophagitis
     Dosage: 300 MG, QW
     Route: 058

REACTIONS (6)
  - Rash erythematous [Unknown]
  - Rash papular [Unknown]
  - Pruritus [Unknown]
  - Vision blurred [Unknown]
  - Injection site rash [Unknown]
  - Knee operation [Unknown]

NARRATIVE: CASE EVENT DATE: 20240801
